FAERS Safety Report 9156511 (Version 1)
Quarter: 2013Q1

REPORT INFORMATION
  Report Type: Spontaneous
  Country: US (occurrence: None)
  Receive Date: 20130307
  Receipt Date: 20130307
  Transmission Date: 20140127
  Serious: Yes (Other)
  Sender: FDA-Public Use
  Company Number: None

PATIENT
  Age: 9 Year
  Sex: Female
  Weight: 43.09 kg

DRUGS (1)
  1. CHILDRENS PLUS MULTI-SYMPTOM COLD GRAPE WITH PE [Suspect]
     Dosage: 48-95LBS 2 TSPS OR 10 ML, EVERY 4 HOURS, PO
     Route: 048
     Dates: start: 20130219, end: 20130221

REACTIONS (2)
  - Nightmare [None]
  - Hallucination, auditory [None]
